FAERS Safety Report 9688800 (Version 2)
Quarter: 2013Q4

REPORT INFORMATION
  Report Type: Spontaneous
  Country: US (occurrence: None)
  Receive Date: 20131113
  Receipt Date: 20131119
  Transmission Date: 20140711
  Serious: Yes (Death)
  Sender: FDA-Public Use
  Company Number: UTC-040111

PATIENT
  Age: 44 Year
  Sex: Female
  Weight: 62.3 kg

DRUGS (2)
  1. REMODULIN [Suspect]
     Indication: PULMONARY ARTERIAL HYPERTENSION
     Dosage: 53.28 UG/KG (0.037 UG/KG, 1 IN 1 MIN) INTRAVENOUS DRIP
     Route: 041
     Dates: start: 20130909
  2. ADCIRCA (TADALAFIL) [Concomitant]

REACTIONS (3)
  - Death [None]
  - Infection [None]
  - Renal failure [None]
